FAERS Safety Report 13230685 (Version 1)
Quarter: 2017Q1

REPORT INFORMATION
  Report Type: Report from Study
  Country: US (occurrence: US)
  Receive Date: 20170214
  Receipt Date: 20170214
  Transmission Date: 20170428
  Serious: No
  Sender: FDA-Public Use
  Company Number: PHEH2017US004358

PATIENT
  Sex: Female
  Weight: 63.95 kg

DRUGS (1)
  1. GILENYA [Suspect]
     Active Substance: FINGOLIMOD HYDROCHLORIDE
     Indication: MULTIPLE SCLEROSIS
     Dosage: 0.5 MG, QD (NIGHT)
     Route: 048
     Dates: start: 20150605

REACTIONS (2)
  - Dyspnoea [Unknown]
  - Visual impairment [Unknown]
